FAERS Safety Report 10997206 (Version 1)
Quarter: 2015Q2

REPORT INFORMATION
  Report Type: Spontaneous
  Country: US (occurrence: None)
  Receive Date: 20150407
  Receipt Date: 20150407
  Transmission Date: 20150821
  Serious: Yes (Hospitalization)
  Sender: FDA-Public Use
  Company Number: None

PATIENT
  Age: 56 Year
  Sex: Male
  Weight: 127.01 kg

DRUGS (1)
  1. ANDROGEL [Suspect]
     Active Substance: TESTOSTERONE
     Indication: SEXUAL DYSFUNCTION
     Dosage: 20.25, 2 PUMPS ONCE DAY
     Route: 061
     Dates: start: 20110509, end: 20130808

REACTIONS (6)
  - Diabetes mellitus [None]
  - Myocardial infarction [None]
  - Hypertension [None]
  - Respiratory distress [None]
  - Atrial flutter [None]
  - Atrial fibrillation [None]

NARRATIVE: CASE EVENT DATE: 20130208
